FAERS Safety Report 5671412-3 (Version None)
Quarter: 2008Q1

REPORT INFORMATION
  Report Type: 
  Country: None (occurrence: None)
  Receive Date: 20080318
  Receipt Date: 20080310
  Transmission Date: 20080703
  Serious: Yes (Hospitalization)
  Sender: FDA-Public Use
  Company Number: AU-PFIZER INC-2008022233

PATIENT
  Sex: Male

DRUGS (2)
  1. LIPITOR [Suspect]
     Indication: HYPERCHOLESTEROLAEMIA
  2. DRUG USED IN DIABETES [Concomitant]
     Route: 048

REACTIONS (4)
  - COLD SWEAT [None]
  - HEPATIC ENZYME INCREASED [None]
  - MYALGIA [None]
  - SKIN DISCOLOURATION [None]
